FAERS Safety Report 9526722 (Version 1)
Quarter: 2013Q3

REPORT INFORMATION
  Report Type: Spontaneous
  Country: ES (occurrence: ES)
  Receive Date: 20130916
  Receipt Date: 20130916
  Transmission Date: 20140515
  Serious: Yes (Hospitalization)
  Sender: FDA-Public Use
  Company Number: ES-CELGENEUS-144-20785-13090401

PATIENT
  Age: 61 Year
  Sex: Female

DRUGS (2)
  1. THALIDOMIDE [Suspect]
     Indication: GASTROINTESTINAL ANGIODYSPLASIA HAEMORRHAGIC
     Dosage: 50 MILLIGRAM
     Route: 048
  2. ACENOCOUMAROL [Concomitant]
     Indication: MITRAL VALVE REPLACEMENT
     Dates: start: 201104

REACTIONS (1)
  - Pulmonary hypertension [Recovering/Resolving]
